FAERS Safety Report 8583598 (Version 6)
Quarter: 2014Q1

REPORT INFORMATION
  Report Type: Spontaneous
  Country: US (occurrence: US)
  Receive Date: 20120529
  Receipt Date: 20140328
  Transmission Date: 20141002
  Serious: Yes (Hospitalization, Other)
  Sender: FDA-Public Use
  Company Number: US-ASTRAZENECA-2005UW06293

PATIENT
  Age: 75 Year
  Sex: Female
  Weight: 56.2 kg

DRUGS (46)
  1. SEROQUEL [Suspect]
     Indication: BIPOLAR I DISORDER
     Route: 048
     Dates: start: 2005
  2. SEROQUEL [Suspect]
     Indication: TACHYPHRENIA
     Route: 048
     Dates: start: 2005
  3. SEROQUEL [Suspect]
     Indication: SCHIZOPHRENIA
     Route: 048
     Dates: start: 2005
  4. SEROQUEL [Suspect]
     Indication: SLEEP DISORDER
     Route: 048
     Dates: start: 2005
  5. SEROQUEL [Suspect]
     Indication: BIPOLAR I DISORDER
     Route: 048
  6. SEROQUEL [Suspect]
     Indication: TACHYPHRENIA
     Route: 048
  7. SEROQUEL [Suspect]
     Indication: SCHIZOPHRENIA
     Route: 048
  8. SEROQUEL [Suspect]
     Indication: SLEEP DISORDER
     Route: 048
  9. SEROQUEL [Suspect]
     Indication: BIPOLAR I DISORDER
     Route: 048
  10. SEROQUEL [Suspect]
     Indication: TACHYPHRENIA
     Route: 048
  11. SEROQUEL [Suspect]
     Indication: SCHIZOPHRENIA
     Route: 048
  12. SEROQUEL [Suspect]
     Indication: SLEEP DISORDER
     Route: 048
  13. SEROQUEL [Suspect]
     Indication: BIPOLAR I DISORDER
     Route: 048
  14. SEROQUEL [Suspect]
     Indication: TACHYPHRENIA
     Route: 048
  15. SEROQUEL [Suspect]
     Indication: SCHIZOPHRENIA
     Route: 048
  16. SEROQUEL [Suspect]
     Indication: SLEEP DISORDER
     Route: 048
  17. SEROQUEL [Suspect]
     Indication: BIPOLAR I DISORDER
     Dosage: 150 MG HS AND SOMETIMES CUTTING THE TABLETS IN HALF
     Route: 048
  18. SEROQUEL [Suspect]
     Indication: TACHYPHRENIA
     Dosage: 150 MG HS AND SOMETIMES CUTTING THE TABLETS IN HALF
     Route: 048
  19. SEROQUEL [Suspect]
     Indication: SCHIZOPHRENIA
     Dosage: 150 MG HS AND SOMETIMES CUTTING THE TABLETS IN HALF
     Route: 048
  20. SEROQUEL [Suspect]
     Indication: SLEEP DISORDER
     Dosage: 150 MG HS AND SOMETIMES CUTTING THE TABLETS IN HALF
     Route: 048
  21. SEROQUEL [Suspect]
     Indication: BIPOLAR I DISORDER
     Dosage: GENERIC, DOUBLING UP, MENTIONED 25 MG AND 50 MG
     Route: 048
  22. SEROQUEL [Suspect]
     Indication: TACHYPHRENIA
     Dosage: GENERIC, DOUBLING UP, MENTIONED 25 MG AND 50 MG
     Route: 048
  23. SEROQUEL [Suspect]
     Indication: SCHIZOPHRENIA
     Dosage: GENERIC, DOUBLING UP, MENTIONED 25 MG AND 50 MG
     Route: 048
  24. SEROQUEL [Suspect]
     Indication: SLEEP DISORDER
     Dosage: GENERIC, DOUBLING UP, MENTIONED 25 MG AND 50 MG
     Route: 048
  25. SEROQUEL [Suspect]
     Indication: BIPOLAR I DISORDER
     Dosage: GENERIC,150 MG
     Route: 048
  26. SEROQUEL [Suspect]
     Indication: TACHYPHRENIA
     Dosage: GENERIC,150 MG
     Route: 048
  27. SEROQUEL [Suspect]
     Indication: SCHIZOPHRENIA
     Dosage: GENERIC,150 MG
     Route: 048
  28. SEROQUEL [Suspect]
     Indication: SLEEP DISORDER
     Dosage: GENERIC,150 MG
     Route: 048
  29. SEROQUEL [Suspect]
     Indication: BIPOLAR I DISORDER
     Route: 048
  30. SEROQUEL [Suspect]
     Indication: TACHYPHRENIA
     Route: 048
  31. SEROQUEL [Suspect]
     Indication: SCHIZOPHRENIA
     Route: 048
  32. SEROQUEL [Suspect]
     Indication: SLEEP DISORDER
     Route: 048
  33. NEXIUM [Suspect]
     Indication: GASTROOESOPHAGEAL REFLUX DISEASE
     Route: 048
     Dates: start: 2010
  34. NEXIUM [Suspect]
     Indication: GASTROOESOPHAGEAL REFLUX DISEASE
     Route: 048
  35. NEXIUM [Suspect]
     Indication: GASTROOESOPHAGEAL REFLUX DISEASE
     Dosage: SOMETIMES TAKES TWICE DAILY
     Route: 048
  36. NEXIUM [Suspect]
     Indication: GASTROOESOPHAGEAL REFLUX DISEASE
     Dosage: SOMETIMES TAKES 3 CAPSULES A DAY
     Route: 048
  37. CRESTOR [Suspect]
     Indication: BLOOD CHOLESTEROL INCREASED
     Route: 048
  38. PRILOSEC [Suspect]
     Indication: GASTROOESOPHAGEAL REFLUX DISEASE
     Route: 048
  39. PRILOSEC [Suspect]
     Indication: GASTROOESOPHAGEAL REFLUX DISEASE
     Route: 048
  40. PRILOSEC OTC [Suspect]
     Route: 048
  41. CELEXA - FORSET LABS [Concomitant]
     Indication: ANXIETY
     Route: 048
  42. CELEBREX - SEARLE G.D. + COMPANY [Concomitant]
  43. ASA - LILLY ELI AND COMPANY [Concomitant]
  44. RANITIDINE [Concomitant]
     Indication: GASTROOESOPHAGEAL REFLUX DISEASE
     Route: 048
  45. DEXILANT [Concomitant]
     Indication: GASTROOESOPHAGEAL REFLUX DISEASE
     Route: 048
  46. ANTIHISTAMINES [Concomitant]

REACTIONS (23)
  - Hiatus hernia [Unknown]
  - Gastric disorder [Unknown]
  - Malaise [Unknown]
  - Dreamy state [Unknown]
  - Gastrooesophageal reflux disease [Unknown]
  - Tachyphrenia [Unknown]
  - Disturbance in attention [Unknown]
  - Adverse event [Unknown]
  - Irritable bowel syndrome [Unknown]
  - Postoperative wound complication [Unknown]
  - Cardiac disorder [Unknown]
  - Insomnia [Unknown]
  - Blood cholesterol increased [Unknown]
  - Abdominal pain upper [Unknown]
  - Vomiting [Unknown]
  - Somnolence [Unknown]
  - Fatigue [Unknown]
  - Dizziness [Unknown]
  - Off label use [Unknown]
  - Intentional drug misuse [Unknown]
  - Drug dose omission [Unknown]
  - Intentional drug misuse [Unknown]
  - Drug ineffective [Unknown]
